FAERS Safety Report 5920490-2 (Version None)
Quarter: 2008Q4

REPORT INFORMATION
  Report Type: 
  Country: None (occurrence: None)
  Receive Date: 20081016
  Receipt Date: 20081014
  Transmission Date: 20090506
  Serious: Yes (Hospitalization)
  Sender: FDA-Public Use
  Company Number: A0752214A

PATIENT
  Age: 64 Year
  Sex: Female
  Weight: 91 kg

DRUGS (4)
  1. SERETIDE [Suspect]
     Indication: ASTHMA
     Route: 055
     Dates: start: 20050101
  2. PREDNISONE [Concomitant]
     Dates: start: 20071001
  3. ADALAT [Concomitant]
     Dates: start: 20030101
  4. HYDROCHLOROTHIAZIDE [Concomitant]
     Dates: start: 20030101

REACTIONS (5)
  - BACK PAIN [None]
  - COUGH [None]
  - HAEMOPTYSIS [None]
  - PNEUMONIA [None]
  - PYREXIA [None]
